FAERS Safety Report 10885447 (Version 1)
Quarter: 2015Q1

REPORT INFORMATION
  Report Type: Report from Study
  Country: GB (occurrence: GB)
  Receive Date: 20150304
  Receipt Date: 20150304
  Transmission Date: 20150721
  Serious: Yes (Other)
  Sender: FDA-Public Use
  Company Number: GB-ABBVIE-15K-167-1354370-00

PATIENT
  Age: 51 Year
  Sex: Female
  Weight: 93 kg

DRUGS (1)
  1. HUMIRA [Suspect]
     Active Substance: ADALIMUMAB
     Indication: RHEUMATOID ARTHRITIS
     Route: 058
     Dates: start: 20110217, end: 20130515

REACTIONS (1)
  - Mouth ulceration [Unknown]

NARRATIVE: CASE EVENT DATE: 20130515
